FAERS Safety Report 4462878-5 (Version None)
Quarter: 2004Q3

REPORT INFORMATION
  Report Type: 
  Country: None (occurrence: None)
  Receive Date: 20040927
  Receipt Date: 20040923
  Transmission Date: 20050211
  Serious: Yes (Other)
  Sender: FDA-Public Use
  Company Number: FRWYE750710MAY04

PATIENT
  Age: 35 Year
  Sex: Female

DRUGS (3)
  1. EFFEXOR LP (VENLAFAXINE HYDROCHLORIDE  EXTENDED RELEASE) [Suspect]
     Indication: DEPRESSION
     Dosage: SEE IMAGE, ORAL
     Route: 048
     Dates: start: 20040611, end: 20040101
  2. EFFEXOR LP (VENLAFAXINE HYDROCHLORIDE  EXTENDED RELEASE) [Suspect]
     Indication: DEPRESSION
     Dosage: SEE IMAGE, ORAL
     Route: 048
     Dates: start: 20040101
  3. EFFEXOR [Suspect]
     Indication: DEPRESSION
     Dosage: 25 MG 3X PER 1 DAY, ORAL
     Route: 048
     Dates: start: 20040504, end: 20040610

REACTIONS (5)
  - CAESAREAN SECTION [None]
  - DRUG EXPOSURE DURING PREGNANCY [None]
  - DRUG INEFFECTIVE [None]
  - RETROPLACENTAL HAEMATOMA [None]
  - VOMITING [None]
